FAERS Safety Report 6809385-X (Version None)
Quarter: 2010Q2

REPORT INFORMATION
  Report Type: 
  Country: None (occurrence: None)
  Receive Date: 20100625
  Receipt Date: 20100625
  Transmission Date: 20101027
  Serious: Yes (Other)
  Sender: FDA-Public Use
  Company Number: None

PATIENT
  Age: 9 Year
  Sex: Male
  Weight: 31.7518 kg

DRUGS (1)
  1. ZYRTEC [Suspect]

REACTIONS (5)
  - AGGRESSION [None]
  - ANGER [None]
  - CRYING [None]
  - DEPRESSED MOOD [None]
  - POOR QUALITY SLEEP [None]
